FAERS Safety Report 9709444 (Version 2)
Quarter: 2013Q4

REPORT INFORMATION
  Report Type: Spontaneous
  Country: IT (occurrence: IT)
  Receive Date: 20131126
  Receipt Date: 20131202
  Transmission Date: 20140711
  Serious: Yes (Hospitalization)
  Sender: FDA-Public Use
  Company Number: IT-ROCHE-1308637

PATIENT
  Age: 71 Year
  Sex: Female

DRUGS (7)
  1. MABTHERA [Suspect]
     Indication: NON-HODGKIN^S LYMPHOMA
     Route: 042
     Dates: start: 20131009, end: 20131030
  2. PIXANTRONE [Suspect]
     Indication: NON-HODGKIN^S LYMPHOMA
     Route: 042
     Dates: start: 20131009, end: 20131030
  3. VINCRISTINA [Suspect]
     Indication: NON-HODGKIN^S LYMPHOMA
     Route: 042
     Dates: start: 20131009, end: 20131030
  4. ENDOXAN BAXTER [Suspect]
     Indication: NON-HODGKIN^S LYMPHOMA
     Route: 042
     Dates: start: 20131009, end: 20131030
  5. PREDNISONE [Suspect]
     Indication: NON-HODGKIN^S LYMPHOMA
     Route: 048
     Dates: start: 20131009, end: 20131103
  6. MIRAPEXIN [Concomitant]
  7. EUTIROX [Concomitant]

REACTIONS (3)
  - Leukopenia [Unknown]
  - Syncope [Unknown]
  - Sopor [Unknown]
